FAERS Safety Report 8376655-6 (Version None)
Quarter: 2012Q2

REPORT INFORMATION
  Report Type: 
  Country: None (occurrence: None)
  Receive Date: 20120518
  Receipt Date: 20120507
  Transmission Date: 20120825
  Serious: Yes (Other)
  Sender: FDA-Public Use
  Company Number: AUR-APL-2012-02211

PATIENT
  Age: 62 Year
  Sex: Female
  Weight: 95.24 kg

DRUGS (7)
  1. PREMARIN [Suspect]
     Indication: NIGHT SWEATS
     Dosage: 0.6 MG (0.6 MG, 1 IN 1 D), ORAL
     Route: 048
  2. DETROL [Suspect]
     Indication: HYPERTONIC BLADDER
     Dosage: 2 IN 1 D, ORAL
     Route: 048
  3. LIPITOR [Suspect]
     Indication: BLOOD CHOLESTEROL INCREASED
     Dosage: 10 MG (10 MG, 1 IN 1 D), ORAL
     Route: 048
     Dates: start: 20050101, end: 20070101
  4. DETROL LA [Suspect]
     Indication: HYPERTONIC BLADDER
     Dosage: 1 IN 1 D, ORAL
     Route: 048
  5. HYDROCHLOROTHIAZIDE [Concomitant]
  6. SIMVASTATIN [Suspect]
     Indication: BLOOD CHOLESTEROL INCREASED
     Dosage: 20 MG (20 MG, 1 IN 1 D), ORAL
     Route: 048
     Dates: start: 20070101
  7. ATENOLOL [Concomitant]

REACTIONS (2)
  - BLADDER DISORDER [None]
  - DRUG INEFFECTIVE [None]
